FAERS Safety Report 21247428 (Version 12)
Quarter: 2023Q2

REPORT INFORMATION
  Report Type: Spontaneous
  Country: US (occurrence: US)
  Receive Date: 20220824
  Receipt Date: 20230526
  Transmission Date: 20230721
  Serious: Yes (Hospitalization, Other)
  Sender: FDA-Public Use
  Company Number: US-PFIZER INC-202201083116

PATIENT
  Age: 77 Year
  Sex: Female
  Weight: 70.295 kg

DRUGS (8)
  1. IBRANCE [Interacting]
     Active Substance: PALBOCICLIB
     Indication: Bone cancer
     Dosage: 125 MG, 1X/DAY
     Dates: start: 20220728
  2. IBRANCE [Interacting]
     Active Substance: PALBOCICLIB
     Dosage: 75 MG
  3. IBRANCE [Interacting]
     Active Substance: PALBOCICLIB
     Dosage: 100 MG, 1X/DAY
     Dates: start: 20220729
  4. LETROZOLE [Suspect]
     Active Substance: LETROZOLE
     Indication: Neoplasm malignant
     Dosage: 2.5 MG, 1X/DAY
     Dates: start: 20201027
  5. METFORMIN HYDROCHLORIDE [Concomitant]
     Active Substance: METFORMIN HYDROCHLORIDE
     Indication: Diabetes mellitus
     Dosage: UNK, 2X/DAY [500 ER]
     Dates: start: 2007
  6. LISINOPRIL [Concomitant]
     Active Substance: LISINOPRIL
     Indication: Blood pressure abnormal
     Dosage: 20 MG, 2X/DAY
     Dates: start: 2007
  7. AMLODIPINE [Concomitant]
     Active Substance: AMLODIPINE BESYLATE
     Indication: Blood pressure abnormal
     Dosage: 10 MG, 1X/DAY
     Dates: start: 2010
  8. SIMVASTATIN [Concomitant]
     Active Substance: SIMVASTATIN
     Indication: Blood pressure abnormal
     Dosage: UNK, 1X/DAY
     Dates: start: 2010

REACTIONS (20)
  - Food interaction [Recovered/Resolved]
  - Blister [Recovered/Resolved]
  - Quality of life decreased [Unknown]
  - Gait inability [Unknown]
  - Neoplasm progression [Not Recovered/Not Resolved]
  - Oral disorder [Recovered/Resolved]
  - Alopecia [Not Recovered/Not Resolved]
  - Pain in extremity [Not Recovered/Not Resolved]
  - Hypertension [Recovered/Resolved]
  - Back pain [Recovered/Resolved]
  - White blood cell count decreased [Unknown]
  - Pathological fracture [Recovered/Resolved]
  - Pain [Not Recovered/Not Resolved]
  - Condition aggravated [Unknown]
  - Illness [Recovered/Resolved]
  - Decreased appetite [Recovered/Resolved]
  - Gastroenteritis viral [Recovered/Resolved]
  - Abdominal pain upper [Unknown]
  - Arthralgia [Recovered/Resolved]
  - Pruritus [Recovered/Resolved]

NARRATIVE: CASE EVENT DATE: 20220101
